FAERS Safety Report 4994839-1 (Version None)
Quarter: 2006Q2

REPORT INFORMATION
  Report Type: 
  Country: None (occurrence: None)
  Receive Date: 20060508
  Receipt Date: 20060412
  Transmission Date: 20061013
  Serious: Yes (Hospitalization)
  Sender: FDA-Public Use
  Company Number: 2006AP01738

PATIENT
  Age: 11761 Day
  Sex: Male
  Weight: 49 kg

DRUGS (8)
  1. OMEPRAL [Suspect]
     Indication: DUODENAL ULCER
     Route: 048
     Dates: start: 20060406, end: 20060407
  2. OMEPRAL [Suspect]
     Route: 042
     Dates: start: 20060330, end: 20060405
  3. GASTER [Concomitant]
     Indication: DUODENAL ULCER
     Route: 042
     Dates: start: 20060330, end: 20060330
  4. GASTER [Concomitant]
     Route: 042
     Dates: start: 20060408, end: 20060410
  5. ADONA [Concomitant]
     Indication: DUODENAL ULCER
     Route: 042
     Dates: start: 20060330, end: 20060404
  6. ADONA [Concomitant]
     Route: 048
     Dates: start: 20060405, end: 20060418
  7. ULCERLMIN [Concomitant]
     Indication: DUODENAL ULCER
     Route: 048
     Dates: start: 20060330
  8. FESIN [Concomitant]
     Indication: IRON DEFICIENCY ANAEMIA
     Route: 042
     Dates: start: 20060404, end: 20060407

REACTIONS (1)
  - EXTRAVASCULAR HAEMOLYSIS [None]
